FAERS Safety Report 24286607 (Version 1)
Quarter: 2024Q3

REPORT INFORMATION
  Report Type: Spontaneous
  Country: US (occurrence: None)
  Receive Date: 20240903
  Receipt Date: 20240903
  Transmission Date: 20241017
  Serious: Yes (Hospitalization)
  Sender: Public
  Company Number: None

PATIENT
  Sex: Female

DRUGS (2)
  1. ICATIBANT ACETATE [Suspect]
     Active Substance: ICATIBANT ACETATE
     Indication: Complement factor abnormal
     Dosage: FREQUENCY : AS NEEDED;?
     Route: 058
     Dates: start: 202406
  2. RUCONEST SDV [Concomitant]

REACTIONS (5)
  - Musculoskeletal disorder [None]
  - Facial discomfort [None]
  - Abdominal pain [None]
  - Sepsis [None]
  - Device related infection [None]

NARRATIVE: CASE EVENT DATE: 20240805
